FAERS Safety Report 16976545 (Version 1)
Quarter: 2019Q4

REPORT INFORMATION
  Report Type: Spontaneous
  Country: US (occurrence: US)
  Receive Date: 20191030
  Receipt Date: 20191030
  Transmission Date: 20200122
  Serious: No
  Sender: FDA-Public Use
  Company Number: US-TEVA-2019-US-1130389

PATIENT
  Sex: Male

DRUGS (1)
  1. PERMETHRIN CREAM [Suspect]
     Active Substance: PERMETHRIN
     Indication: ACARODERMATITIS
     Route: 065

REACTIONS (2)
  - Product physical consistency issue [Unknown]
  - Drug ineffective [Unknown]
